FAERS Safety Report 5740829-0 (Version None)
Quarter: 2008Q2

REPORT INFORMATION
  Report Type: 
  Country: None (occurrence: None)
  Receive Date: 20080516
  Receipt Date: 20080505
  Transmission Date: 20081010
  Serious: Yes (Hospitalization, Other)
  Sender: FDA-Public Use
  Company Number: DE-WYE-H03988808

PATIENT
  Sex: Female

DRUGS (3)
  1. PANTOPRAZOLE SODIUM [Suspect]
     Indication: DUODENAL ULCER
     Route: 048
     Dates: start: 20040101
  2. CORSOTALOL [Suspect]
     Indication: ARRHYTHMIA
  3. SIMVADURA [Suspect]
     Indication: HYPERLIPIDAEMIA

REACTIONS (11)
  - ABDOMINAL DISCOMFORT [None]
  - ANGIOMYOLIPOMA [None]
  - ANOREXIA [None]
  - BILE DUCT STENOSIS [None]
  - CHOLECYSTITIS [None]
  - HEPATIC CYST [None]
  - LABORATORY TEST ABNORMAL [None]
  - NAUSEA [None]
  - NEPHRITIS INTERSTITIAL [None]
  - PAPILLITIS [None]
  - WEIGHT DECREASED [None]
